FAERS Safety Report 23229592 (Version 1)
Quarter: 2023Q4

REPORT INFORMATION
  Report Type: Spontaneous
  Country: US (occurrence: US)
  Receive Date: 20231127
  Receipt Date: 20231127
  Transmission Date: 20240109
  Serious: No
  Sender: FDA-Public Use
  Company Number: US-STRIDES ARCOLAB LIMITED-2023SP014103

PATIENT
  Age: 39 Year
  Sex: Male

DRUGS (21)
  1. CYCLOSPORINE [Suspect]
     Active Substance: CYCLOSPORINE
     Indication: Urticaria chronic
     Dosage: 1 MG/KG/DAY
     Route: 065
  2. CYCLOSPORINE [Suspect]
     Active Substance: CYCLOSPORINE
     Dosage: 3 MG/KG/DAY
     Route: 065
  3. MONTELUKAST [Suspect]
     Active Substance: MONTELUKAST SODIUM
     Indication: Urticaria cholinergic
     Dosage: 10 MG DAILY
     Route: 065
  4. MONTELUKAST [Suspect]
     Active Substance: MONTELUKAST SODIUM
     Indication: Urticaria pressure
  5. RANITIDINE [Suspect]
     Active Substance: RANITIDINE
     Indication: Urticaria pressure
     Dosage: 150 MG TWICE DAILY
     Route: 065
  6. RANITIDINE [Suspect]
     Active Substance: RANITIDINE
     Indication: Urticaria cholinergic
  7. HYDROXYZINE HYDROCHLORIDE [Suspect]
     Active Substance: HYDROXYZINE HYDROCHLORIDE
     Indication: Urticaria cholinergic
     Dosage: 25 MG DAILY EVERY EVENING
     Route: 065
  8. HYDROXYZINE HYDROCHLORIDE [Suspect]
     Active Substance: HYDROXYZINE HYDROCHLORIDE
     Indication: Urticaria pressure
  9. SULFASALAZINE [Suspect]
     Active Substance: SULFASALAZINE
     Indication: Urticaria cholinergic
     Dosage: UNK
     Route: 065
  10. SULFASALAZINE [Suspect]
     Active Substance: SULFASALAZINE
     Indication: Urticaria pressure
  11. HYDROXYCHLOROQUINE [Suspect]
     Active Substance: HYDROXYCHLOROQUINE
     Indication: Urticaria cholinergic
     Dosage: UNK
     Route: 065
  12. HYDROXYCHLOROQUINE [Suspect]
     Active Substance: HYDROXYCHLOROQUINE
     Indication: Urticaria pressure
  13. DAPSONE [Suspect]
     Active Substance: DAPSONE
     Indication: Urticaria cholinergic
     Dosage: UNK
     Route: 065
  14. DAPSONE [Suspect]
     Active Substance: DAPSONE
     Indication: Urticaria pressure
  15. OMALIZUMAB [Suspect]
     Active Substance: OMALIZUMAB
     Indication: Urticaria chronic
     Dosage: 300 MG EVERY 4 WEEKS
     Route: 065
  16. OMALIZUMAB [Suspect]
     Active Substance: OMALIZUMAB
     Indication: Urticaria cholinergic
  17. OMALIZUMAB [Suspect]
     Active Substance: OMALIZUMAB
     Indication: Urticaria pressure
  18. CETIRIZINE [Concomitant]
     Active Substance: CETIRIZINE HYDROCHLORIDE
     Indication: Urticaria cholinergic
     Dosage: 10 MG TWICE DAILY
     Route: 065
  19. CETIRIZINE [Concomitant]
     Active Substance: CETIRIZINE HYDROCHLORIDE
     Indication: Urticaria pressure
  20. FEXOFENADINE [Concomitant]
     Active Substance: FEXOFENADINE HYDROCHLORIDE
     Indication: Urticaria cholinergic
     Dosage: 180 MG DAILY
     Route: 065
  21. FEXOFENADINE [Concomitant]
     Active Substance: FEXOFENADINE HYDROCHLORIDE
     Indication: Urticaria pressure

REACTIONS (7)
  - Haematuria [Recovered/Resolved]
  - Hyperglycaemia [Recovered/Resolved]
  - Hypertension [Recovered/Resolved]
  - Hyperuricaemia [Recovered/Resolved]
  - Therapy non-responder [Unknown]
  - Drug ineffective [Unknown]
  - Off label use [Unknown]
